FAERS Safety Report 6716458-9 (Version None)
Quarter: 2010Q2

REPORT INFORMATION
  Report Type: 
  Country: None (occurrence: None)
  Receive Date: 20100507
  Receipt Date: 20100505
  Transmission Date: 20101027
  Serious: Yes (Other)
  Sender: FDA-Public Use
  Company Number: US-ROXANE LABORATORIES, INC.-2010-RO-00532RO

PATIENT
  Age: 35 Year
  Sex: Male

DRUGS (3)
  1. HYDROMORPHONE HCL [Suspect]
     Indication: PAIN
     Route: 042
  2. LORAZEPAM [Suspect]
     Indication: ANXIETY
     Route: 042
  3. TERBUTALINE SULFATE [Suspect]
     Indication: PRIAPISM
     Route: 058

REACTIONS (1)
  - DRUG INEFFECTIVE [None]
